FAERS Safety Report 11221679 (Version 1)
Quarter: 2015Q2

REPORT INFORMATION
  Report Type: Spontaneous
  Country: US (occurrence: None)
  Receive Date: 20150625
  Receipt Date: 20150625
  Transmission Date: 20150821
  Serious: Yes (Other)
  Sender: FDA-Public Use
  Company Number: None

PATIENT
  Age: 73 Year
  Sex: Female
  Weight: 56.7 kg

DRUGS (8)
  1. MELOXICAM. [Suspect]
     Active Substance: MELOXICAM
     Indication: INFLAMMATION
     Route: 048
     Dates: start: 20150425, end: 20150518
  2. VITAMIN D3 [Concomitant]
     Active Substance: CHOLECALCIFEROL
  3. HYDROCHLOROTHZIDE [Concomitant]
  4. ASPIRIN 81 MG [Concomitant]
     Active Substance: ASPIRIN
  5. POTASSIUM CL ER [Concomitant]
  6. MELOXICAM. [Suspect]
     Active Substance: MELOXICAM
     Indication: COMPRESSION FRACTURE
     Route: 048
     Dates: start: 20150425, end: 20150518
  7. TRANDOLAPRIL. [Concomitant]
     Active Substance: TRANDOLAPRIL
  8. MULTIVITAMIN [Concomitant]
     Active Substance: VITAMINS

REACTIONS (3)
  - Vitreous loss [None]
  - Visual impairment [None]
  - Retinal detachment [None]

NARRATIVE: CASE EVENT DATE: 20150520
